FAERS Safety Report 6542777-5 (Version None)
Quarter: 2010Q1

REPORT INFORMATION
  Report Type: 
  Country: None (occurrence: None)
  Receive Date: 20100114
  Receipt Date: 20091230
  Transmission Date: 20100710
  Serious: Yes (Death)
  Sender: FDA-Public Use
  Company Number: JPI-P-009467

PATIENT
  Age: 48 Year
  Sex: Female

DRUGS (1)
  1. XYREM [Suspect]
     Indication: FIBROMYALGIA
     Dosage: (2.5 TO 3 GRAMS TWICE NIGHTLY), ORAL
     Route: 048
     Dates: start: 20060525

REACTIONS (1)
  - DEATH [None]
